FAERS Safety Report 8799205 (Version 1)
Quarter: 2012Q4

REPORT INFORMATION
  Report Type: 
  Country: US (occurrence: US)
  Receive Date: 20120920
  Receipt Date: 20120920
  Transmission Date: 20130627
  Serious: Yes (Hospitalization)
  Sender: FDA-Public Use
  Company Number: US-ASTRAZENECA-2012SE26108

PATIENT
  Age: 79 Year
  Sex: Female

DRUGS (2)
  1. LISINOPRIL [Suspect]
     Route: 048
  2. 3-5 DIFFERENT MEDICATIONS [Concomitant]

REACTIONS (3)
  - Asthma [Unknown]
  - Chest pain [Unknown]
  - Constipation [Unknown]
